FAERS Safety Report 11499797 (Version 1)
Quarter: 2015Q3

REPORT INFORMATION
  Report Type: Spontaneous
  Country: US (occurrence: None)
  Receive Date: 20150910
  Receipt Date: 20150910
  Transmission Date: 20151125
  Serious: Yes (Other)
  Sender: FDA-Public Use
  Company Number: None

PATIENT
  Age: 77 Year
  Sex: Male
  Weight: 55.34 kg

DRUGS (9)
  1. CRESTOR [Concomitant]
     Active Substance: ROSUVASTATIN CALCIUM
  2. TIMOPTIC [Concomitant]
     Active Substance: TIMOLOL MALEATE
  3. PICATO [Suspect]
     Active Substance: INGENOL MEBUTATE
     Indication: SKIN CANCER
     Dosage: 2 - 0.05% TUBES 0.05% 1 PER 2 DAYS RUB ON SKIN; SEE ATT DIRECTIONS
     Route: 061
     Dates: start: 20150812, end: 20150813
  4. CALCIUM [Concomitant]
     Active Substance: CALCIUM
  5. PICATO [Suspect]
     Active Substance: INGENOL MEBUTATE
     Indication: SKIN NEOPLASM EXCISION
     Dosage: 2 - 0.05% TUBES 0.05% 1 PER 2 DAYS RUB ON SKIN; SEE ATT DIRECTIONS
     Route: 061
     Dates: start: 20150812, end: 20150813
  6. PICATO [Suspect]
     Active Substance: INGENOL MEBUTATE
     Dosage: 3 - 0.015% TUBES 0.015% 1 PER 3 DAYS RUB ON SKIN; SEE ATT DIRECTIONS
     Route: 061
  7. TRAVATAN [Concomitant]
     Active Substance: TRAVOPROST
  8. OCUDOSE [Concomitant]
  9. CENTRUM SILVER [Concomitant]
     Active Substance: VITAMINS

REACTIONS (2)
  - Erythema [None]
  - Pain [None]

NARRATIVE: CASE EVENT DATE: 20150813
